FAERS Safety Report 7981439-4 (Version None)
Quarter: 2011Q4

REPORT INFORMATION
  Report Type: 
  Country: None (occurrence: None)
  Receive Date: 20111212
  Receipt Date: 20111128
  Transmission Date: 20120403
  Serious: Yes (Death, Life-Threatening, Hospitalization)
  Sender: FDA-Public Use
  Company Number: 2011-4789

PATIENT
  Age: 64 Year
  Sex: Female

DRUGS (1)
  1. SOMATULINE AUTOSOLUTION 120MG (LANREOTIDE AUTOGEL) (LANREOTIDE) (LANRE [Suspect]
     Indication: ACROMEGALY
     Dosage: 120 MG (120 MG, 1 IN 28 D),INTRAMUSCULAR
     Route: 030
     Dates: start: 20071008

REACTIONS (7)
  - DEHYDRATION [None]
  - COMA [None]
  - NEOPLASM PROGRESSION [None]
  - HYPOTENSION [None]
  - COLON CANCER METASTATIC [None]
  - GENERAL PHYSICAL HEALTH DETERIORATION [None]
  - TERMINAL STATE [None]
